FAERS Safety Report 17290911 (Version 1)
Quarter: 2020Q1

REPORT INFORMATION
  Report Type: Spontaneous
  Country: AU (occurrence: AU)
  Receive Date: 20200121
  Receipt Date: 20200121
  Transmission Date: 20200409
  Serious: Yes (Other)
  Sender: FDA-Public Use
  Company Number: AU-BAYER-2019-216728

PATIENT
  Age: 32 Year
  Sex: Female

DRUGS (2)
  1. MIRENA [Suspect]
     Active Substance: LEVONORGESTREL
     Indication: CONTRACEPTION
     Dosage: 20 MCG/24HR, CONT
     Route: 015
     Dates: start: 201707, end: 20190915
  2. MIRENA [Suspect]
     Active Substance: LEVONORGESTREL
     Indication: CONTRACEPTION

REACTIONS (5)
  - Abortion threatened [None]
  - Haemorrhage in pregnancy [None]
  - Drug ineffective [None]
  - Pregnancy with contraceptive device [Not Recovered/Not Resolved]
  - Post procedural haematoma [None]

NARRATIVE: CASE EVENT DATE: 2019
